FAERS Safety Report 10891692 (Version 1)
Quarter: 2015Q1

REPORT INFORMATION
  Report Type: Spontaneous
  Country: CA (occurrence: CA)
  Receive Date: 20150306
  Receipt Date: 20150306
  Transmission Date: 20150721
  Serious: Yes (Disabling)
  Sender: FDA-Public Use
  Company Number: CA-TEVA-545809ACC

PATIENT
  Sex: Male
  Weight: 107 kg

DRUGS (1)
  1. METHYLPHENIDATE [Suspect]
     Active Substance: METHYLPHENIDATE
     Indication: PSYCHOGENIC SEIZURE
     Dosage: 90 MILLIGRAM DAILY;
     Route: 048

REACTIONS (2)
  - Transient global amnesia [Unknown]
  - Condition aggravated [Unknown]
